FAERS Safety Report 17316112 (Version 1)
Quarter: 2020Q1

REPORT INFORMATION
  Report Type: Spontaneous
  Country: SE (occurrence: SE)
  Receive Date: 20200124
  Receipt Date: 20200124
  Transmission Date: 20200409
  Serious: Yes (Other)
  Sender: FDA-Public Use
  Company Number: SE-ROCHE-2528174

PATIENT
  Age: 72 Year
  Sex: Male
  Weight: 88 kg

DRUGS (4)
  1. MABTHERA [Suspect]
     Active Substance: RITUXIMAB
     Dosage: R-GDP 1 CYCLE.
     Route: 041
     Dates: start: 20190912, end: 20191004
  2. MABTHERA [Suspect]
     Active Substance: RITUXIMAB
     Dosage: R-GEMOX
     Route: 041
     Dates: start: 20191126, end: 20191230
  3. MABTHERA [Suspect]
     Active Substance: RITUXIMAB
     Indication: DIFFUSE LARGE B-CELL LYMPHOMA
     Dosage: 6 CYCLES OF RCHOP
     Route: 041
     Dates: start: 20170809, end: 20171004
  4. MABTHERA [Suspect]
     Active Substance: RITUXIMAB
     Dosage: THIRD THERAPY REGIMEN OF R-IME
     Route: 041
     Dates: start: 20191011, end: 20191104

REACTIONS (1)
  - Diffuse large B-cell lymphoma recurrent [Unknown]

NARRATIVE: CASE EVENT DATE: 20190820
